FAERS Safety Report 5253342-4 (Version None)
Quarter: 2007Q1

REPORT INFORMATION
  Report Type: 
  Country: None (occurrence: None)
  Receive Date: 20061201
  Receipt Date: 20060829
  Transmission Date: 20070707
  Serious: No
  Sender: FDA-Public Use
  Company Number: 2006PV020355

PATIENT
  Age: 71 Year
  Sex: Male
  Weight: 97.5234 kg

DRUGS (6)
  1. BYETTA [Suspect]
     Indication: DIABETES MELLITUS NON-INSULIN-DEPENDENT
     Dosage: SEE IMAGE
     Route: 058
     Dates: start: 20060724, end: 20060825
  2. BYETTA [Suspect]
     Indication: DIABETES MELLITUS NON-INSULIN-DEPENDENT
     Dosage: SEE IMAGE
     Route: 058
     Dates: start: 20060826
  3. METFORMIN HCL [Concomitant]
  4. ATICAND [Concomitant]
  5. DYNACIRC [Concomitant]
  6. VITAMIN B-12 [Concomitant]

REACTIONS (3)
  - NAUSEA [None]
  - SELF-INDUCED VOMITING [None]
  - WEIGHT DECREASED [None]
